FAERS Safety Report 8961627 (Version 2)
Quarter: 2013Q2

REPORT INFORMATION
  Report Type: Spontaneous
  Country: US (occurrence: US)
  Receive Date: 20121213
  Receipt Date: 20130430
  Transmission Date: 20140414
  Serious: Yes (Hospitalization, Other)
  Sender: FDA-Public Use
  Company Number: US-BAYER-2012-129208

PATIENT
  Age: 39 Year
  Sex: Female

DRUGS (7)
  1. YASMIN [Suspect]
  2. SYNTHROID [Concomitant]
     Dosage: 257 MCG DAILY
  3. LANTUS [Concomitant]
     Indication: DIABETES MELLITUS
     Dosage: 60 U, EVERY NIGHT
  4. DARVOCET-N [Concomitant]
     Indication: PAIN
  5. TYLENOL [Concomitant]
     Indication: PAIN
  6. LEVAQUIN [Concomitant]
     Dosage: UNK
     Route: 048
     Dates: start: 20070204
  7. CYCLOBENZAPRINE [Concomitant]
     Dosage: UNK
     Dates: start: 20070204

REACTIONS (4)
  - Thrombophlebitis superficial [None]
  - Axillary vein thrombosis [None]
  - Aortic embolus [None]
  - Subclavian vein thrombosis [None]
